FAERS Safety Report 5360287-8 (Version None)
Quarter: 2007Q2

REPORT INFORMATION
  Report Type: 
  Country: None (occurrence: None)
  Receive Date: 20070618
  Receipt Date: 20070607
  Transmission Date: 20071010
  Serious: Yes (Hospitalization)
  Sender: FDA-Public Use
  Company Number: US-JNJFOC-20070601873

PATIENT
  Sex: Male
  Weight: 89.81 kg

DRUGS (16)
  1. DOXIL [Suspect]
     Route: 042
     Dates: start: 20070322, end: 20070606
  2. DOXIL [Suspect]
     Route: 042
     Dates: start: 20070322, end: 20070606
  3. DOXIL [Suspect]
     Route: 042
     Dates: start: 20070322, end: 20070606
  4. DOXIL [Suspect]
     Indication: MULTIPLE MYELOMA
     Route: 042
     Dates: start: 20070322, end: 20070606
  5. THALIDOMIDE [Suspect]
     Indication: MULTIPLE MYELOMA
     Route: 048
  6. DECADRON [Suspect]
     Indication: MULTIPLE MYELOMA
     Route: 065
  7. LOPRESSOR [Concomitant]
     Route: 065
  8. COLACE [Concomitant]
     Route: 065
  9. PYRIDOXINE HCL [Concomitant]
     Route: 065
  10. ACIPHEX [Concomitant]
     Route: 065
  11. FENTANYL [Concomitant]
     Route: 062
  12. MSIR [Concomitant]
     Dosage: AS NECESSARY
     Route: 048
  13. XANAX [Concomitant]
     Dosage: AS NECESSARY
     Route: 048
  14. COUMADIN [Concomitant]
     Route: 065
  15. MAGNESIUM OXIDE [Concomitant]
     Route: 065
  16. TERAZOSIN HCL [Concomitant]
     Route: 065

REACTIONS (5)
  - BRADYCARDIA [None]
  - CARDIAC FAILURE CONGESTIVE [None]
  - HYPERTENSION [None]
  - HYPOXIA [None]
  - SUPRAVENTRICULAR TACHYCARDIA [None]
